FAERS Safety Report 10550901 (Version 1)
Quarter: 2014Q4

REPORT INFORMATION
  Report Type: Spontaneous
  Country: DZ (occurrence: None)
  Receive Date: 20141027
  Receipt Date: 20141027
  Transmission Date: 20150529
  Serious: Yes (Other)
  Sender: FDA-Public Use
  Company Number: DZ-ZYDUS-005284

PATIENT
  Sex: Male

DRUGS (2)
  1. SODIUM VALPROATE [Suspect]
     Active Substance: VALPROATE SODIUM
     Indication: HAEMORRHAGE INTRACRANIAL
     Dosage: 1.0DAYS
  2. NOVOSEVEN [Suspect]
     Active Substance: COAGULATION FACTOR VIIA RECOMBINANT HUMAN
     Indication: FACTOR VII DEFICIENCY

REACTIONS (2)
  - Peritoneal haemorrhage [None]
  - Drug interaction [None]
